FAERS Safety Report 16050117 (Version 2)
Quarter: 2021Q1

REPORT INFORMATION
  Report Type: Other
  Country: US (occurrence: US)
  Receive Date: 20190308
  Receipt Date: 20210302
  Transmission Date: 20210419
  Serious: Yes (Other)
  Sender: FDA-Public Use
  Company Number: US-ROCHE-2277931

PATIENT
  Sex: Female

DRUGS (4)
  1. XOLAIR [Suspect]
     Active Substance: OMALIZUMAB
  2. XOLAIR [Suspect]
     Active Substance: OMALIZUMAB
     Indication: VASCULITIS NECROTISING
     Route: 058
     Dates: start: 20181016
  3. XOLAIR [Suspect]
     Active Substance: OMALIZUMAB
     Indication: VASCULITIS NECROTISING
     Dosage: STRENGTH: 150 MG/ML
     Route: 058
     Dates: start: 20210206
  4. XOLAIR [Suspect]
     Active Substance: OMALIZUMAB

REACTIONS (4)
  - Off label use [Unknown]
  - Herpes zoster [Unknown]
  - Intentional product use issue [Unknown]
  - Urticaria [Recovered/Resolved]
